FAERS Safety Report 15941194 (Version 4)
Quarter: 2019Q1

REPORT INFORMATION
  Report Type: Spontaneous
  Country: US (occurrence: US)
  Receive Date: 20190208
  Receipt Date: 20190321
  Transmission Date: 20190417
  Serious: Yes (Hospitalization, Other)
  Sender: FDA-Public Use
  Company Number: US-GILEAD-2019-0388862

PATIENT
  Age: 54 Year
  Sex: Male
  Weight: 86.62 kg

DRUGS (7)
  1. RITONAVIR. [Concomitant]
     Active Substance: RITONAVIR
  2. RALTEGRAVIR. [Concomitant]
     Active Substance: RALTEGRAVIR
  3. DARUNAVIR [Concomitant]
     Active Substance: DARUNAVIR
  4. DESCOVY [Suspect]
     Active Substance: EMTRICITABINE\TENOFOVIR ALAFENAMIDE FUMARATE
     Indication: HIV INFECTION
     Dosage: 1 DF
     Route: 048
  5. ROSUVASTATIN. [Concomitant]
     Active Substance: ROSUVASTATIN
  6. OMEPRAZOLE. [Concomitant]
     Active Substance: OMEPRAZOLE
  7. L-THYROXINE [LEVOTHYROXINE] [Concomitant]

REACTIONS (1)
  - Fanconi syndrome acquired [Recovered/Resolved]

NARRATIVE: CASE EVENT DATE: 201703
